FAERS Safety Report 13693562 (Version 1)
Quarter: 2017Q2

REPORT INFORMATION
  Report Type: Spontaneous
  Country: US (occurrence: US)
  Receive Date: 20170626
  Receipt Date: 20170626
  Transmission Date: 20170830
  Serious: Yes (Disabling)
  Sender: FDA-Public Use
  Company Number: None

PATIENT
  Age: 63 Year
  Sex: Female
  Weight: 58.5 kg

DRUGS (2)
  1. PROPRANOLOL [Concomitant]
     Active Substance: PROPRANOLOL HYDROCHLORIDE
  2. TOPIRAMATE. [Suspect]
     Active Substance: TOPIRAMATE
     Indication: MIGRAINE PROPHYLAXIS
     Dosage: OTHER STRENGTH:MG/MG;QUANTITY:1 TABLET(S); AT BEDTIME?
     Route: 048
     Dates: start: 20120509, end: 20170503

REACTIONS (6)
  - Insomnia [None]
  - Visual impairment [None]
  - Seizure [None]
  - Speech disorder [None]
  - Dizziness [None]
  - Mood swings [None]

NARRATIVE: CASE EVENT DATE: 20151213
